FAERS Safety Report 20619938 (Version 1)
Quarter: 2022Q1

REPORT INFORMATION
  Report Type: Spontaneous
  Country: US (occurrence: None)
  Receive Date: 20220321
  Receipt Date: 20220321
  Transmission Date: 20220424
  Serious: No
  Sender: FDA-Public Use
  Company Number: None

PATIENT
  Age: 34 Year
  Sex: Male
  Weight: 81.65 kg

DRUGS (3)
  1. CIMZIA [Suspect]
     Active Substance: CERTOLIZUMAB PEGOL
     Indication: Iridocyclitis
     Dosage: INJECT 400MG (2 SYRINGES) SUBCUTANEOUSLY  AT WEEKS 0.2 AND 4  AS DIRECTED
     Route: 058
     Dates: start: 202105
  2. CIMZIA [Suspect]
     Active Substance: CERTOLIZUMAB PEGOL
  3. CIMZIA [Suspect]
     Active Substance: CERTOLIZUMAB PEGOL

REACTIONS (3)
  - Condition aggravated [None]
  - Therapy interrupted [None]
  - Nausea [None]
